FAERS Safety Report 15975967 (Version 1)
Quarter: 2019Q1

REPORT INFORMATION
  Report Type: Spontaneous
  Country: IT (occurrence: IT)
  Receive Date: 20190218
  Receipt Date: 20190218
  Transmission Date: 20190418
  Serious: Yes (Hospitalization)
  Sender: FDA-Public Use
  Company Number: IT-PFIZER INC-256484

PATIENT
  Age: 49 Year
  Sex: Female

DRUGS (5)
  1. ANZATAX (PACLITAXEL) [Suspect]
     Active Substance: PACLITAXEL
     Indication: OVARIAN CANCER
     Dosage: 330 MG, CYCLIC (3 VIALS 100 MG AND 1 VIAL 30 MG)
     Route: 042
     Dates: start: 20090417, end: 20090417
  2. DECADRON [Concomitant]
     Active Substance: DEXAMETHASONE
     Dosage: 20 MG, UNK
  3. TRIMETON [Concomitant]
     Active Substance: CHLORPHENIRAMINE MALEATE
     Dosage: UNK
  4. ANZATAX (PACLITAXEL) [Suspect]
     Active Substance: PACLITAXEL
     Dosage: 330 MG, CYCLIC (3 VIALS 100 MG AND 1 VIAL 30 MG)
     Route: 042
     Dates: start: 20090417, end: 20090417
  5. ZOFRAN [Concomitant]
     Active Substance: ONDANSETRON HYDROCHLORIDE
     Dosage: 8 MG, UNK

REACTIONS (5)
  - Vomiting [Recovered/Resolved]
  - Pallor [Recovered/Resolved]
  - Hyperhidrosis [Recovered/Resolved]
  - Pulse absent [Recovered/Resolved]
  - Blood pressure decreased [Recovered/Resolved]

NARRATIVE: CASE EVENT DATE: 20090417
